FAERS Safety Report 8601810-7 (Version None)
Quarter: 2012Q3

REPORT INFORMATION
  Report Type: 
  Country: None (occurrence: None)
  Receive Date: 20120817
  Receipt Date: 20120420
  Transmission Date: 20120928
  Serious: Yes (Other)
  Sender: FDA-Public Use
  Company Number: US-BRISTOL-MYERS SQUIBB COMPANY-16539801

PATIENT
  Age: 59 Year
  Sex: Female
  Weight: 73 kg

DRUGS (1)
  1. SPRYCEL [Suspect]
     Indication: CHRONIC MYELOID LEUKAEMIA
     Dosage: ON 27MAR12 INCREASED-100 MG FOR 2WKS. AGAIN-50MG FOR 1.5WK,18MAR12-70MG.20MG TABS,1C6048C,MAR0214
     Dates: start: 20120324

REACTIONS (4)
  - HEART RATE DECREASED [None]
  - ABDOMINAL DISTENSION [None]
  - BLOOD PRESSURE DECREASED [None]
  - WEIGHT INCREASED [None]
